FAERS Safety Report 5778051-4 (Version None)
Quarter: 2008Q2

REPORT INFORMATION
  Report Type: 
  Country: None (occurrence: None)
  Receive Date: 20080617
  Receipt Date: 20080617
  Transmission Date: 20081010
  Serious: No
  Sender: FDA-Public Use
  Company Number: None

PATIENT
  Age: 41 Year
  Sex: Female
  Weight: 79.3795 kg

DRUGS (2)
  1. CHANTIX [Suspect]
     Indication: SMOKING CESSATION THERAPY
     Dosage: 1MG 2X A DAY PO
     Route: 048
     Dates: start: 20080518, end: 20080616
  2. CHANTIX [Suspect]

REACTIONS (2)
  - ABNORMAL DREAMS [None]
  - STRESS [None]
